FAERS Safety Report 13548505 (Version 1)
Quarter: 2017Q2

REPORT INFORMATION
  Report Type: Spontaneous
  Country: US (occurrence: US)
  Receive Date: 20170516
  Receipt Date: 20170516
  Transmission Date: 20170830
  Serious: No
  Sender: FDA-Public Use
  Company Number: US-JNJFOC-20170406785

PATIENT
  Age: 78 Year
  Sex: Female
  Weight: 52.16 kg

DRUGS (7)
  1. VITAMIN B [Concomitant]
     Active Substance: VITAMIN B
     Indication: ROUTINE HEALTH MAINTENANCE
     Dosage: YEARS
     Route: 065
  2. BIOTIN [Concomitant]
     Active Substance: BIOTIN
     Indication: HAIR DISORDER
     Dosage: 2-3 DAYS
     Route: 065
  3. WOMENS ROGAINE UNSCENTED [Suspect]
     Active Substance: MINOXIDIL
     Route: 061
  4. BIOTIN [Concomitant]
     Active Substance: BIOTIN
     Indication: NAIL DISORDER
     Dosage: 2-3 DAYS
     Route: 065
  5. BIOTIN [Concomitant]
     Active Substance: BIOTIN
     Indication: SKIN DISORDER
     Dosage: 2-3 DAYS
     Route: 065
  6. WOMENS ROGAINE UNSCENTED [Suspect]
     Active Substance: MINOXIDIL
     Indication: ALOPECIA
     Dosage: HALF CAPFUL AMOUNT
     Route: 061
  7. FINASTERIDE. [Concomitant]
     Active Substance: FINASTERIDE
     Indication: DIURETIC THERAPY
     Dosage: 2-3 MONTHS
     Route: 065

REACTIONS (2)
  - Hair texture abnormal [Unknown]
  - Hair colour changes [Unknown]
